FAERS Safety Report 5192733-7 (Version None)
Quarter: 2006Q4

REPORT INFORMATION
  Report Type: 
  Country: None (occurrence: None)
  Receive Date: 20061228
  Receipt Date: 20061215
  Transmission Date: 20070319
  Serious: Yes (Hospitalization)
  Sender: FDA-Public Use
  Company Number: PHBS2006TW19537

PATIENT
  Age: 76 Year
  Sex: Female

DRUGS (1)
  1. CO-DIOVAN [Suspect]
     Indication: HYPERTENSION
     Route: 048
     Dates: start: 20060825

REACTIONS (3)
  - FEELING COLD [None]
  - NEPHRITIS [None]
  - PYREXIA [None]
